FAERS Safety Report 19430016 (Version 1)
Quarter: 2021Q2

REPORT INFORMATION
  Report Type: Report from Study
  Country: ES (occurrence: ES)
  Receive Date: 20210617
  Receipt Date: 20210617
  Transmission Date: 20210717
  Serious: Yes (Other)
  Sender: FDA-Public Use
  Company Number: NVSC2021ES128778

PATIENT

DRUGS (1)
  1. METFORMIN [Suspect]
     Active Substance: METFORMIN HYDROCHLORIDE
     Indication: PRODUCT USED FOR UNKNOWN INDICATION
     Dosage: UNK
     Route: 065

REACTIONS (23)
  - Thirst [Unknown]
  - Infection [Unknown]
  - Abnormal loss of weight [Unknown]
  - Poor peripheral circulation [Unknown]
  - Hypoacusis [Unknown]
  - Impaired healing [Unknown]
  - Macroangiopathy [Unknown]
  - Skin discolouration [Unknown]
  - Mental impairment [Unknown]
  - Fatigue [Unknown]
  - Vision blurred [Unknown]
  - Pollakiuria [Unknown]
  - Injection site pain [Unknown]
  - Pain [Unknown]
  - Liver disorder [Unknown]
  - Hunger [Unknown]
  - Hypoaesthesia [Unknown]
  - Paraesthesia [Unknown]
  - Lethargy [Unknown]
  - Memory impairment [Unknown]
  - Mood swings [Unknown]
  - Hypoglycaemia [Unknown]
  - Blood glucose fluctuation [Unknown]
